FAERS Safety Report 23142036 (Version 2)
Quarter: 2023Q4

REPORT INFORMATION
  Report Type: Report from Study
  Country: CA (occurrence: CA)
  Receive Date: 20231103
  Receipt Date: 20231115
  Transmission Date: 20240110
  Serious: Yes (Other)
  Sender: FDA-Public Use
  Company Number: CA-TAKEDA-2023TUS089406

PATIENT
  Age: 43 Year
  Sex: Male

DRUGS (9)
  1. VEDOLIZUMAB [Suspect]
     Active Substance: VEDOLIZUMAB
     Indication: Pouchitis
     Dosage: 300 MILLIGRAM
     Route: 042
     Dates: start: 20230830
  2. VEDOLIZUMAB [Suspect]
     Active Substance: VEDOLIZUMAB
     Dosage: 300 MILLIGRAM
     Route: 042
  3. VEDOLIZUMAB [Suspect]
     Active Substance: VEDOLIZUMAB
     Dosage: 300 MILLIGRAM
     Route: 042
  4. CIPROFLOXACIN [Concomitant]
     Active Substance: CIPROFLOXACIN
     Dosage: UNK
  5. FLAGYL [Concomitant]
     Active Substance: METRONIDAZOLE\METRONIDAZOLE HYDROCHLORIDE
     Dosage: UNK
  6. LORAZEPAM [Concomitant]
     Active Substance: LORAZEPAM
     Dosage: UNK
  7. ESCITALOPRAM [Concomitant]
     Active Substance: ESCITALOPRAM OXALATE
     Dosage: UNK
  8. TRAZODONE [Concomitant]
     Active Substance: TRAZODONE HYDROCHLORIDE
     Dosage: UNK
  9. LOMOTIL [Concomitant]
     Active Substance: ATROPINE SULFATE\DIPHENOXYLATE HYDROCHLORIDE
     Dosage: UNK

REACTIONS (11)
  - Haematochezia [Unknown]
  - Off label use [Unknown]
  - Insomnia [Unknown]
  - Restlessness [Unknown]
  - Poor quality sleep [Unknown]
  - Frequent bowel movements [Unknown]
  - Defaecation urgency [Unknown]
  - Hot flush [Unknown]
  - Hyperhidrosis [Unknown]
  - Flushing [Unknown]
  - Headache [Unknown]

NARRATIVE: CASE EVENT DATE: 20230830
